FAERS Safety Report 7094772-8 (Version None)
Quarter: 2010Q4

REPORT INFORMATION
  Report Type: 
  Country: None (occurrence: None)
  Receive Date: 20101110
  Receipt Date: 20101109
  Transmission Date: 20110411
  Serious: Yes (Hospitalization)
  Sender: FDA-Public Use
  Company Number: DE-MERCK-1011DEU00055

PATIENT
  Age: 70 Year
  Sex: Female

DRUGS (4)
  1. FOSAMAX [Suspect]
     Indication: OSTEOPOROSIS
     Route: 048
  2. VERAPAMIL HYDROCHLORIDE [Concomitant]
     Route: 065
  3. ETORICOXIB [Concomitant]
     Route: 048
  4. CHOLECALCIFEROL [Concomitant]
     Route: 065

REACTIONS (1)
  - OSTEOMYELITIS CHRONIC [None]
